FAERS Safety Report 4488182-7 (Version None)
Quarter: 2004Q4

REPORT INFORMATION
  Report Type: 
  Country: None (occurrence: None)
  Receive Date: 20041028
  Receipt Date: 20041018
  Transmission Date: 20050328
  Serious: Yes (Hospitalization)
  Sender: FDA-Public Use
  Company Number: PHFR2004GB03907

PATIENT
  Age: 72 Year
  Sex: Female

DRUGS (6)
  1. DICLOFENAC [Suspect]
     Indication: PAIN
     Dosage: 50 MG, TID
     Route: 048
     Dates: start: 20040901, end: 20040917
  2. PLAVIX [Suspect]
     Indication: MYOCARDIAL ISCHAEMIA
     Dosage: 75 MG, QD
     Route: 048
     Dates: start: 20040101, end: 20040917
  3. AMLODIPINE [Concomitant]
     Indication: MYOCARDIAL ISCHAEMIA
     Dosage: 10 MG, QD
     Route: 048
     Dates: start: 20010101
  4. SIMVASTATIN [Concomitant]
     Indication: MYOCARDIAL ISCHAEMIA
     Dosage: 40 MG, QD
     Route: 048
     Dates: start: 20020101
  5. PERINDOPRIL [Concomitant]
     Indication: HYPERTENSION
     Dosage: 2 MG, QD
     Route: 048
     Dates: start: 20010101
  6. ATENOLOL [Concomitant]
     Indication: MYOCARDIAL ISCHAEMIA
     Dosage: 50 MG, QD
     Route: 048

REACTIONS (10)
  - BLOOD CREATININE ABNORMAL [None]
  - BLOOD CREATININE INCREASED [None]
  - BLOOD UREA ABNORMAL [None]
  - BLOOD UREA INCREASED [None]
  - GASTROINTESTINAL MUCOSAL DISORDER [None]
  - HAEMATEMESIS [None]
  - HAEMOGLOBIN ABNORMAL [None]
  - HAEMOGLOBIN DECREASED [None]
  - HIATUS HERNIA [None]
  - MELAENA [None]
